FAERS Safety Report 24449799 (Version 1)
Quarter: 2024Q4

REPORT INFORMATION
  Report Type: Spontaneous
  Country: US (occurrence: US)
  Receive Date: 20241017
  Receipt Date: 20241017
  Transmission Date: 20250114
  Serious: No
  Sender: TEVA
  Company Number: US-TEVA-VS-3249373

PATIENT
  Age: 66 Year
  Sex: Female

DRUGS (1)
  1. METOPROLOL SUCCINATE [Suspect]
     Active Substance: METOPROLOL SUCCINATE
     Indication: Product used for unknown indication
     Route: 065

REACTIONS (6)
  - Bradycardia [Unknown]
  - Discomfort [Unknown]
  - Diarrhoea [Unknown]
  - Abdominal discomfort [Unknown]
  - Peripheral coldness [Unknown]
  - Adverse drug reaction [Unknown]
